FAERS Safety Report 4547935-7 (Version None)
Quarter: 2004Q4

REPORT INFORMATION
  Report Type: 
  Country: None (occurrence: None)
  Receive Date: 20041227
  Receipt Date: 20041015
  Transmission Date: 20050328
  Serious: No
  Sender: FDA-Public Use
  Company Number: 04P-163-0277661-00

PATIENT
  Age: 32 Year
  Sex: Female

DRUGS (9)
  1. HUMIRA [Suspect]
     Indication: RHEUMATOID ARTHRITIS
     Dosage: 40 MG, 1 IN 2 WK, SUBCUTANEOUS
     Route: 058
     Dates: start: 20040101
  2. METHOTREXATE [Concomitant]
  3. PREDNISONE [Concomitant]
  4. CYCLOBENZAPRINE [Concomitant]
  5. BUCINDOLOL HYDROCHLORIDE [Concomitant]
  6. GLUCOSAMINE W/ CHONDROITIN SULFATES [Concomitant]
  7. IRON [Concomitant]
  8. CALCIUM GLUCONATE [Concomitant]
  9. ACETAMINOPHEN [Concomitant]

REACTIONS (2)
  - DRUG INEFFECTIVE [None]
  - RHEUMATOID ARTHRITIS [None]
